FAERS Safety Report 9741927 (Version 3)
Quarter: 2014Q1

REPORT INFORMATION
  Report Type: Report from Study
  Country: CA (occurrence: CA)
  Receive Date: 20131210
  Receipt Date: 20140113
  Transmission Date: 20141002
  Serious: Yes (Other)
  Sender: FDA-Public Use
  Company Number: CA-JNJFOC-20131202605

PATIENT
  Age: 53 Year
  Sex: Male
  Weight: 80 kg

DRUGS (5)
  1. REMICADE [Suspect]
     Indication: CROHN^S DISEASE
     Route: 042
  2. IMURAN [Concomitant]
     Route: 065
  3. PREDNISONE [Concomitant]
     Route: 065
  4. CIPRO [Concomitant]
     Route: 065
  5. FLAGYL [Concomitant]
     Route: 065

REACTIONS (2)
  - Bladder cancer recurrent [Unknown]
  - Alopecia [Unknown]
